FAERS Safety Report 15491143 (Version 1)
Quarter: 2018Q4

REPORT INFORMATION
  Report Type: Spontaneous
  Country: TW (occurrence: TW)
  Receive Date: 20181012
  Receipt Date: 20181012
  Transmission Date: 20190205
  Serious: Yes (Hospitalization)
  Sender: FDA-Public Use
  Company Number: TW-AMGEN-TWNSP2018141765

PATIENT
  Age: 36 Year
  Sex: Male

DRUGS (7)
  1. ENBREL [Suspect]
     Active Substance: ETANERCEPT
     Dosage: 25 MG, Q5D
     Route: 058
     Dates: start: 20180827
  2. PREDNISONE. [Concomitant]
     Active Substance: PREDNISONE
     Indication: PSORIATIC ARTHROPATHY
     Dosage: 1 DF, 1X/DAY (QD)
  3. CELEBREX [Concomitant]
     Active Substance: CELECOXIB
     Indication: PSORIATIC ARTHROPATHY
     Dosage: 1 DF, 1X/DAY (QD)
     Route: 065
  4. METHOTREXATE. [Concomitant]
     Active Substance: METHOTREXATE
     Indication: PSORIATIC ARTHROPATHY
     Dosage: 4 DF, WEEKLY
     Route: 065
  5. SKETA [Concomitant]
     Indication: PSORIATIC ARTHROPATHY
     Dosage: 1 DF, 1X/DAY (QD)
     Route: 065
  6. ENBREL [Suspect]
     Active Substance: ETANERCEPT
     Indication: PSORIATIC ARTHROPATHY
     Dosage: 25 MG, 2X/WEEK (BIW)
     Route: 058
     Dates: start: 20130624, end: 20180826
  7. FOLIC ACID. [Concomitant]
     Active Substance: FOLIC ACID
     Indication: PSORIATIC ARTHROPATHY
     Dosage: 1 DF, 1X/DAY (QD)
     Route: 065

REACTIONS (2)
  - Product use issue [Unknown]
  - Pancreatitis acute [Not Recovered/Not Resolved]

NARRATIVE: CASE EVENT DATE: 20180827
